FAERS Safety Report 8935605 (Version 1)
Quarter: 2012Q4

REPORT INFORMATION
  Report Type: 
  Country: US (occurrence: US)
  Receive Date: 20121130
  Receipt Date: 20121130
  Transmission Date: 20130627
  Serious: Yes (Congenital Anomaly, Other)
  Sender: FDA-Public Use
  Company Number: US-PFIZER INC-2012299305

PATIENT

DRUGS (4)
  1. EFFEXOR XR [Suspect]
     Indication: SOCIAL ANXIETY DISORDER
     Dosage: 150 mg, daily
     Route: 064
  2. EFFEXOR XR [Suspect]
     Indication: DEPRESSION
  3. ZOLOFT [Suspect]
     Indication: SOCIAL ANXIETY DISORDER
     Dosage: UNK, daily
     Route: 064
  4. ZOLOFT [Suspect]
     Indication: DEPRESSION

REACTIONS (2)
  - Maternal exposure timing unspecified [Unknown]
  - Head deformity [Unknown]
